FAERS Safety Report 5633186-1 (Version None)
Quarter: 2008Q1

REPORT INFORMATION
  Report Type: 
  Country: None (occurrence: None)
  Receive Date: 20080221
  Receipt Date: 20080212
  Transmission Date: 20080703
  Serious: Yes (Hospitalization)
  Sender: FDA-Public Use
  Company Number: FR-BRISTOL-MYERS SQUIBB COMPANY-14083919

PATIENT
  Age: 81 Year
  Sex: Male

DRUGS (11)
  1. GLUCOPHAGE [Suspect]
     Dosage: 850MG/D JUN2007-AUG2007; 850MG BID (1700MG)AUG2007-05NOV2007(3MONTHS).
     Route: 048
     Dates: start: 20071106, end: 20071203
  2. AMARYL [Suspect]
     Route: 048
     Dates: end: 20071203
  3. GLUCOR [Suspect]
     Route: 048
     Dates: end: 20071203
  4. DIANTALVIC [Suspect]
     Route: 048
     Dates: end: 20071203
  5. ALLOPURINOL [Concomitant]
  6. COKENZEN [Concomitant]
  7. DAFLON [Concomitant]
  8. LASILIX [Concomitant]
  9. FONZYLANE [Concomitant]
  10. HYPERIUM [Concomitant]
  11. PERMIXON [Concomitant]

REACTIONS (2)
  - HYPOGLYCAEMIA [None]
  - RENAL FAILURE [None]
